FAERS Safety Report 8508253-5 (Version None)
Quarter: 2012Q2

REPORT INFORMATION
  Report Type: 
  Country: None (occurrence: None)
  Receive Date: 20120405
  Receipt Date: 20080527
  Transmission Date: 20120825
  Serious: Yes (Other)
  Sender: FDA-Public Use
  Company Number: PHEH2008US03513

PATIENT

DRUGS (1)
  1. RECLAST [Suspect]

REACTIONS (1)
  - RENAL FAILURE [None]
